FAERS Safety Report 25068406 (Version 1)
Quarter: 2025Q1

REPORT INFORMATION
  Report Type: Spontaneous
  Country: US (occurrence: None)
  Receive Date: 20250312
  Receipt Date: 20250312
  Transmission Date: 20250408
  Serious: No
  Sender: FDA-CTU
  Company Number: None

PATIENT
  Sex: Male

DRUGS (1)
  1. STELARA [Suspect]
     Active Substance: USTEKINUMAB
     Indication: Crohn^s disease
     Route: 042
     Dates: start: 202301

REACTIONS (5)
  - Nephrolithiasis [None]
  - Haemoglobin decreased [None]
  - Weight decreased [None]
  - Skin hyperpigmentation [None]
  - Dehydration [None]
